FAERS Safety Report 8763410 (Version 2)
Quarter: 2012Q4

REPORT INFORMATION
  Report Type: Report from Study
  Country: CO (occurrence: CO)
  Receive Date: 20120831
  Receipt Date: 20121003
  Transmission Date: 20130627
  Serious: Yes (Other)
  Sender: FDA-Public Use
  Company Number: CO-009507513-1208COL011597

PATIENT
  Age: 42 Year
  Sex: Female

DRUGS (4)
  1. ISENTRESS [Suspect]
     Dosage: UNK mg, qd
     Route: 048
     Dates: start: 20120417, end: 20120417
  2. TRUVADA [Suspect]
     Dosage: UNK DF, UNK
     Route: 048
     Dates: start: 20120417, end: 20120417
  3. REYATAZ [Suspect]
     Dosage: UNK mg, qd
     Route: 048
     Dates: start: 20120417, end: 20120417
  4. NORVIR [Suspect]
     Dosage: UNK mg, qd
     Route: 048
     Dates: start: 20120417, end: 20120417

REACTIONS (3)
  - Abortion induced [Unknown]
  - Exposure during pregnancy [Recovered/Resolved]
  - Pregnancy [None]
